FAERS Safety Report 9915502 (Version 1)
Quarter: 2014Q1

REPORT INFORMATION
  Report Type: Report from Study
  Country: FR (occurrence: FR)
  Receive Date: 20140221
  Receipt Date: 20140221
  Transmission Date: 20141002
  Serious: Yes (Hospitalization)
  Sender: FDA-Public Use
  Company Number: FR-ROCHE-1347784

PATIENT
  Sex: Female

DRUGS (19)
  1. RITUXIMAB [Suspect]
     Indication: RHEUMATOID ARTHRITIS
     Dosage: DAY 1
     Route: 065
     Dates: start: 20070521
  2. RITUXIMAB [Suspect]
     Dosage: DAY 15
     Route: 065
     Dates: start: 20070604
  3. RITUXIMAB [Suspect]
     Dosage: DAY 1
     Route: 065
     Dates: start: 20080317
  4. RITUXIMAB [Suspect]
     Dosage: DAY 15
     Route: 065
     Dates: start: 20080331
  5. RITUXIMAB [Suspect]
     Dosage: DAY 1
     Route: 065
     Dates: start: 20090616
  6. RITUXIMAB [Suspect]
     Dosage: DAY 15
     Route: 065
     Dates: start: 20090630
  7. RITUXIMAB [Suspect]
     Dosage: DAY 1
     Route: 065
     Dates: start: 20100609
  8. RITUXIMAB [Suspect]
     Dosage: DAY 1
     Route: 065
     Dates: start: 20100623
  9. RITUXIMAB [Suspect]
     Dosage: DAY 1
     Route: 065
     Dates: start: 20110607
  10. RITUXIMAB [Suspect]
     Dosage: DAY 15
     Route: 065
     Dates: start: 20110621
  11. RITUXIMAB [Suspect]
     Dosage: DAY 1
     Route: 065
     Dates: start: 20120327
  12. RITUXIMAB [Suspect]
     Dosage: DAY 15
     Route: 065
     Dates: start: 20120410
  13. RITUXIMAB [Suspect]
     Dosage: DAY 1
     Route: 065
     Dates: start: 20121126
  14. RITUXIMAB [Suspect]
     Dosage: DAY 15
     Route: 065
     Dates: start: 20121210
  15. CORTANCYL [Concomitant]
     Route: 065
     Dates: start: 20070604
  16. CORTANCYL [Concomitant]
     Route: 065
  17. CORTANCYL [Concomitant]
     Route: 065
  18. METHYLPREDNISOLONE [Concomitant]
  19. PARACETAMOL [Concomitant]

REACTIONS (6)
  - Large intestine polyp [Recovered/Resolved]
  - Hypertension [Recovered/Resolved]
  - Infusion related reaction [Recovered/Resolved]
  - Bronchitis [Recovered/Resolved]
  - Gastroenteritis [Recovered/Resolved]
  - Paronychia [Recovered/Resolved]
